FAERS Safety Report 4665236-3 (Version None)
Quarter: 2005Q2

REPORT INFORMATION
  Report Type: 
  Country: None (occurrence: None)
  Receive Date: 20050517
  Receipt Date: 20050125
  Transmission Date: 20051028
  Serious: No
  Sender: FDA-Public Use
  Company Number: S05-USA-00394-02

PATIENT
  Age: 85 Year
  Sex: Female

DRUGS (2)
  1. NAMENDA [Suspect]
     Indication: DEMENTIA ALZHEIMER'S TYPE
     Dates: start: 20040101
  2. COUMADIN [Suspect]

REACTIONS (1)
  - INTERNATIONAL NORMALISED RATIO INCREASED [None]
